APPROVED DRUG PRODUCT: HYDROXYZINE HYDROCHLORIDE
Active Ingredient: HYDROXYZINE HYDROCHLORIDE
Strength: 25MG
Dosage Form/Route: TABLET;ORAL
Application: A204279 | Product #002 | TE Code: AB
Applicant: HERITAGE PHARMACEUTICALS INC DBA AVET PHARMACEUTICALS INC
Approved: Aug 20, 2014 | RLD: No | RS: No | Type: RX